FAERS Safety Report 8537136-X (Version None)
Quarter: 2012Q3

REPORT INFORMATION
  Report Type: 
  Country: None (occurrence: None)
  Receive Date: 20120725
  Receipt Date: 20120716
  Transmission Date: 20120928
  Serious: Yes (Other)
  Sender: FDA-Public Use
  Company Number: US-ASTRAZENECA-2012SE49627

PATIENT
  Age: 33 Year
  Sex: Female

DRUGS (3)
  1. BRILINTA [Suspect]
     Route: 048
  2. ZOCOR [Concomitant]
  3. BETA BLOCKER [Concomitant]

REACTIONS (3)
  - DEVICE OCCLUSION [None]
  - CHEST PAIN [None]
  - ACUTE MYOCARDIAL INFARCTION [None]
